FAERS Safety Report 18787478 (Version 7)
Quarter: 2021Q2

REPORT INFORMATION
  Report Type: Report from Study
  Country: CN (occurrence: CN)
  Receive Date: 20210126
  Receipt Date: 20210618
  Transmission Date: 20210717
  Serious: Yes (Hospitalization)
  Sender: FDA-Public Use
  Company Number: CN-ROCHE-2752958

PATIENT
  Age: 52 Year
  Sex: Female
  Weight: 60 kg

DRUGS (41)
  1. PALONOSETRON HYDROCHLORIDE. [Concomitant]
     Active Substance: PALONOSETRON HYDROCHLORIDE
     Route: 042
     Dates: start: 20210218, end: 20210218
  2. TIOPRONIN [Concomitant]
     Active Substance: TIOPRONIN
     Route: 042
     Dates: start: 20201229, end: 20201229
  3. PALONOSETRON HYDROCHLORIDE. [Concomitant]
     Active Substance: PALONOSETRON HYDROCHLORIDE
     Route: 042
     Dates: start: 20210125, end: 20210125
  4. DEXAMETHASONE SODIUM PHOSPHATE. [Concomitant]
     Active Substance: DEXAMETHASONE SODIUM PHOSPHATE
     Route: 042
     Dates: start: 20210311, end: 20210312
  5. VITAMIN C [Concomitant]
     Active Substance: ASCORBIC ACID
     Route: 042
     Dates: start: 20201118, end: 20201118
  6. POTASSIUM CHLORIDE. [Concomitant]
     Active Substance: POTASSIUM CHLORIDE
     Route: 042
     Dates: start: 20201118, end: 20201118
  7. DOXORUBICIN [Suspect]
     Active Substance: DOXORUBICIN
     Indication: HER2 POSITIVE BREAST CANCER
     Dosage: ON 09/DEC/2020, SHE RECEIVED MOST RECENT DOSE OF DOXIRUBACIN 97.2 MG PRIOR TO ADVERSE EVENT.
     Route: 042
     Dates: start: 20201006
  8. CYCLOPHOSPHAMIDE. [Suspect]
     Active Substance: CYCLOPHOSPHAMIDE
     Indication: HER2 POSITIVE BREAST CANCER
     Dosage: ON 09/DEC/2020, SHE RECEIVED MOST RECENT DOSE OF CYCLOPHOSPHAMIDE 972 MG PRIOR TO ADVERSE EVENT.
     Route: 042
     Dates: start: 20201006
  9. TIOPRONIN [Concomitant]
     Active Substance: TIOPRONIN
     Route: 042
     Dates: start: 20210311, end: 20210312
  10. DEXAMETHASONE SODIUM PHOSPHATE. [Concomitant]
     Active Substance: DEXAMETHASONE SODIUM PHOSPHATE
     Route: 042
     Dates: start: 20210218, end: 20210218
  11. INSULIN [Concomitant]
     Active Substance: INSULIN NOS
     Dosage: DOSE 8 U
     Route: 042
     Dates: start: 20201209, end: 20201210
  12. INSULIN [Concomitant]
     Active Substance: INSULIN NOS
     Dosage: DOSE 8 U
     Route: 042
     Dates: start: 20201118, end: 20201118
  13. INSULIN [Concomitant]
     Active Substance: INSULIN NOS
     Dosage: DOSE 8 U
     Route: 042
     Dates: start: 20201229, end: 20201229
  14. POTASSIUM CHLORIDE. [Concomitant]
     Active Substance: POTASSIUM CHLORIDE
     Route: 042
     Dates: start: 20201229, end: 20201229
  15. POTASSIUM CHLORIDE. [Concomitant]
     Active Substance: POTASSIUM CHLORIDE
     Route: 042
     Dates: start: 20210125, end: 20210125
  16. MAGNESIUM ISOGLYCYRRHIZINATE [Concomitant]
     Active Substance: MAGNESIUM ISOGLYCYRRHIZINATE
     Route: 042
     Dates: start: 20210118, end: 20210125
  17. REDUCED GLUTATHIONE SODIUM [Concomitant]
     Active Substance: GLUTATHIONE
     Route: 042
     Dates: start: 20210118, end: 20210125
  18. PERTUZUMAB. [Suspect]
     Active Substance: PERTUZUMAB
     Indication: HER2 POSITIVE BREAST CANCER
     Dosage: ON 29/DEC/2020, SHE RECEIVED MOST RECENT DOSE OF PERTUZUMAB 840 MG PRIOR TO ADVERSE EVENT.
     Route: 042
     Dates: start: 20201229
  19. VITAMIN B6 [Concomitant]
     Active Substance: PYRIDOXINE HYDROCHLORIDE
     Route: 042
     Dates: start: 20201209, end: 20201210
  20. VITAMIN C [Concomitant]
     Active Substance: ASCORBIC ACID
     Route: 042
     Dates: start: 20201229, end: 20201229
  21. TIOPRONIN [Concomitant]
     Active Substance: TIOPRONIN
     Route: 042
     Dates: start: 20201118, end: 20201118
  22. DEXAMETHASONE SODIUM PHOSPHATE. [Concomitant]
     Active Substance: DEXAMETHASONE SODIUM PHOSPHATE
     Indication: INFUSION RELATED REACTION
     Route: 042
     Dates: start: 20201118, end: 20201118
  23. DEXAMETHASONE SODIUM PHOSPHATE. [Concomitant]
     Active Substance: DEXAMETHASONE SODIUM PHOSPHATE
     Route: 042
     Dates: start: 20201229, end: 20201229
  24. VITAMIN C [Concomitant]
     Active Substance: ASCORBIC ACID
     Route: 042
     Dates: start: 20210311, end: 20210312
  25. POTASSIUM CHLORIDE. [Concomitant]
     Active Substance: POTASSIUM CHLORIDE
     Route: 042
     Dates: start: 20210311, end: 20210312
  26. DIAMMONIUM GLYCYRRHIZINATE [Concomitant]
     Active Substance: HERBALS\DIAMMONIUM GLYCYRRHIZINATE
     Route: 048
     Dates: start: 20210118, end: 20210125
  27. TRASTUZUMAB. [Suspect]
     Active Substance: TRASTUZUMAB
     Indication: HER2 POSITIVE BREAST CANCER
     Dosage: ON 29/DEC/2020, SHE RECEIVED MOST RECENT DOSE OF TRANSTUZUMAB 480 MG PRIOR TO ADVERSE EVENT.
     Route: 041
     Dates: start: 20201229
  28. PALONOSETRON HYDROCHLORIDE. [Concomitant]
     Active Substance: PALONOSETRON HYDROCHLORIDE
     Indication: VOMITING
     Route: 042
     Dates: start: 20201118, end: 20201118
  29. DEXAMETHASONE SODIUM PHOSPHATE. [Concomitant]
     Active Substance: DEXAMETHASONE SODIUM PHOSPHATE
     Route: 042
     Dates: start: 20201209, end: 20201210
  30. VITAMIN B6 [Concomitant]
     Active Substance: PYRIDOXINE HYDROCHLORIDE
     Route: 042
     Dates: start: 20201229, end: 20201229
  31. VITAMIN B6 [Concomitant]
     Active Substance: PYRIDOXINE HYDROCHLORIDE
     Route: 042
     Dates: start: 20210311, end: 20210312
  32. VITAMIN C [Concomitant]
     Active Substance: ASCORBIC ACID
     Route: 042
     Dates: start: 20210125, end: 20210125
  33. INSULIN [Concomitant]
     Active Substance: INSULIN NOS
     Dosage: DOSE 8 U
     Route: 042
     Dates: start: 20210311, end: 20210312
  34. POTASSIUM CHLORIDE. [Concomitant]
     Active Substance: POTASSIUM CHLORIDE
     Route: 042
     Dates: start: 20201209, end: 20201210
  35. DOCETAXEL. [Suspect]
     Active Substance: DOCETAXEL
     Indication: HER2 POSITIVE BREAST CANCER
     Dosage: ON 29/DEC/2020, SHE RECEIVED MOST RECENT DOSE OF DOCETAXEL 972 MG PRIOR TO ADVERSE EVENT.
     Route: 042
     Dates: start: 20201229
  36. TIOPRONIN [Concomitant]
     Active Substance: TIOPRONIN
     Route: 042
     Dates: start: 20201209, end: 20201210
  37. DEXAMETHASONE SODIUM PHOSPHATE. [Concomitant]
     Active Substance: DEXAMETHASONE SODIUM PHOSPHATE
     Route: 042
     Dates: start: 20210125, end: 20210125
  38. VITAMIN B6 [Concomitant]
     Active Substance: PYRIDOXINE HYDROCHLORIDE
     Route: 042
     Dates: start: 20201118, end: 20201118
  39. VITAMIN B6 [Concomitant]
     Active Substance: PYRIDOXINE HYDROCHLORIDE
     Route: 042
     Dates: start: 20210125, end: 20210125
  40. VITAMIN C [Concomitant]
     Active Substance: ASCORBIC ACID
     Route: 042
     Dates: start: 20201209, end: 20201210
  41. INSULIN [Concomitant]
     Active Substance: INSULIN NOS
     Dosage: DOSE 8 U
     Route: 042
     Dates: start: 20210125, end: 20210125

REACTIONS (2)
  - Aspartate aminotransferase increased [Recovered/Resolved]
  - Alanine aminotransferase increased [Recovered/Resolved]

NARRATIVE: CASE EVENT DATE: 20210118
